FAERS Safety Report 21194210 (Version 1)
Quarter: 2022Q3

REPORT INFORMATION
  Report Type: Spontaneous
  Country: US (occurrence: US)
  Receive Date: 20220810
  Receipt Date: 20220810
  Transmission Date: 20221026
  Serious: Yes (Hospitalization)
  Sender: FDA-Public Use
  Company Number: US-MYLANLABS-2022M1082339

PATIENT
  Age: 57 Year
  Sex: Female

DRUGS (8)
  1. MAGNESIUM SULFATE [Suspect]
     Active Substance: MAGNESIUM SULFATE
     Indication: Status asthmaticus
     Dosage: 2 GRAM, BOLUS
     Route: 065
  2. MAGNESIUM SULFATE [Suspect]
     Active Substance: MAGNESIUM SULFATE
     Dosage: UNK , INFUSION
     Route: 065
  3. METHYLPREDNISOLONE [Concomitant]
     Active Substance: METHYLPREDNISOLONE
     Indication: Status asthmaticus
     Dosage: UNK
     Route: 065
  4. ALBUTEROL [Concomitant]
     Active Substance: ALBUTEROL
     Indication: Status asthmaticus
     Dosage: UNK, NEBULISER
     Route: 055
  5. TERBUTALINE [Concomitant]
     Active Substance: TERBUTALINE
     Indication: Status asthmaticus
     Dosage: UNK
     Route: 030
  6. KETAMINE [Concomitant]
     Active Substance: KETAMINE
     Indication: Status asthmaticus
     Dosage: UNK, INFUSION
     Route: 065
  7. EPINEPHRINE [Concomitant]
     Active Substance: EPINEPHRINE
     Indication: Status asthmaticus
     Dosage: UNK, INFUSION
     Route: 065
  8. HELIOX [Concomitant]
     Active Substance: OXYGEN
     Indication: Status asthmaticus
     Dosage: UNK
     Route: 065

REACTIONS (4)
  - Anuria [Unknown]
  - Acute kidney injury [Unknown]
  - Hypermagnesaemia [Recovered/Resolved]
  - Off label use [Unknown]
